FAERS Safety Report 20585564 (Version 1)
Quarter: 2022Q1

REPORT INFORMATION
  Report Type: Report from Study
  Country: KR (occurrence: KR)
  Receive Date: 20220312
  Receipt Date: 20220312
  Transmission Date: 20220424
  Serious: Yes (Hospitalization)
  Sender: FDA-Public Use
  Company Number: KR-CELLTRION INC.-2022KR002655

PATIENT

DRUGS (6)
  1. HERZUMA [Suspect]
     Active Substance: TRASTUZUMAB-PKRB
     Indication: HER2 positive gastric cancer
     Dosage: 396 MG, 6 WEEK(S)
     Route: 042
     Dates: start: 20201120, end: 20210329
  2. PREGABALIN [Concomitant]
     Active Substance: PREGABALIN
     Indication: Adverse event
     Dosage: 75 MG, BID
     Route: 048
     Dates: start: 20210201, end: 20210411
  3. PREGABALIN [Concomitant]
     Active Substance: PREGABALIN
     Indication: Neuropathy peripheral
  4. ENSITRA SEMI [Concomitant]
     Indication: Adverse event
     Dosage: 1 DF, BID
     Route: 048
     Dates: start: 20210315, end: 20210412
  5. ENSITRA SEMI [Concomitant]
     Indication: Neuropathy peripheral
  6. CAPECITABINE [Concomitant]
     Active Substance: CAPECITABINE
     Indication: HER2 positive gastric cancer
     Dosage: 1800 MG, BID
     Route: 048
     Dates: start: 20201120, end: 20210412

REACTIONS (1)
  - Cerebral haemorrhage [Recovered/Resolved]

NARRATIVE: CASE EVENT DATE: 20210404
